FAERS Safety Report 19870483 (Version 1)
Quarter: 2021Q3

REPORT INFORMATION
  Report Type: Report from Study
  Country: US (occurrence: US)
  Receive Date: 20210922
  Receipt Date: 20210922
  Transmission Date: 20211014
  Serious: Yes (Death, Hospitalization, Other)
  Sender: FDA-Public Use
  Company Number: US-TAKEDA-2021TUS057674

PATIENT
  Age: 73 Year
  Sex: Female

DRUGS (20)
  1. TEDUGLUTIDE [Suspect]
     Active Substance: TEDUGLUTIDE
     Dosage: 0.050 UNK
     Route: 065
     Dates: start: 20190430, end: 202011
  2. TEDUGLUTIDE [Suspect]
     Active Substance: TEDUGLUTIDE
     Dosage: 0.500 MILLIGRAM/KILOGRAM, TID
     Route: 065
     Dates: start: 202011, end: 202012
  3. TEDUGLUTIDE [Suspect]
     Active Substance: TEDUGLUTIDE
     Dosage: 0.500 MILLIGRAM/KILOGRAM, TID
     Route: 065
     Dates: start: 202012
  4. TEDUGLUTIDE [Suspect]
     Active Substance: TEDUGLUTIDE
     Indication: SHORT-BOWEL SYNDROME
     Dosage: 0.500 MILLIGRAM/KILOGRAM, TID
     Route: 065
     Dates: start: 201709, end: 20190430
  5. TEDUGLUTIDE [Suspect]
     Active Substance: TEDUGLUTIDE
     Dosage: 0.050 UNK
     Route: 065
     Dates: start: 20190430, end: 202011
  6. TEDUGLUTIDE [Suspect]
     Active Substance: TEDUGLUTIDE
     Dosage: 0.500 MILLIGRAM/KILOGRAM, TID
     Route: 065
     Dates: start: 202011, end: 202012
  7. TEDUGLUTIDE [Suspect]
     Active Substance: TEDUGLUTIDE
     Indication: SHORT-BOWEL SYNDROME
     Dosage: 0.500 MILLIGRAM/KILOGRAM, TID
     Route: 065
     Dates: start: 201709, end: 20190430
  8. TEDUGLUTIDE [Suspect]
     Active Substance: TEDUGLUTIDE
     Dosage: 0.500 MILLIGRAM/KILOGRAM, TID
     Route: 065
     Dates: start: 202011, end: 202012
  9. TEDUGLUTIDE [Suspect]
     Active Substance: TEDUGLUTIDE
     Indication: SHORT-BOWEL SYNDROME
     Dosage: 0.500 MILLIGRAM/KILOGRAM, TID
     Route: 065
     Dates: start: 201709, end: 20190430
  10. TEDUGLUTIDE [Suspect]
     Active Substance: TEDUGLUTIDE
     Dosage: 0.050 UNK
     Route: 065
     Dates: start: 20190430, end: 202011
  11. TEDUGLUTIDE [Suspect]
     Active Substance: TEDUGLUTIDE
     Dosage: 0.500 MILLIGRAM/KILOGRAM, TID
     Route: 065
     Dates: start: 202012
  12. TEDUGLUTIDE [Suspect]
     Active Substance: TEDUGLUTIDE
     Dosage: 0.500 MILLIGRAM/KILOGRAM, TID
     Route: 065
     Dates: start: 202011, end: 202012
  13. TEDUGLUTIDE [Suspect]
     Active Substance: TEDUGLUTIDE
     Dosage: 0.500 MILLIGRAM/KILOGRAM, TID
     Route: 065
     Dates: start: 202012
  14. TEDUGLUTIDE [Suspect]
     Active Substance: TEDUGLUTIDE
     Dosage: 0.050 UNK
     Route: 065
     Dates: start: 20190430, end: 202011
  15. TEDUGLUTIDE [Suspect]
     Active Substance: TEDUGLUTIDE
     Dosage: 0.500 MILLIGRAM/KILOGRAM, TID
     Route: 065
     Dates: start: 202012
  16. MORPHINE [Concomitant]
     Active Substance: MORPHINE
     Indication: PROCEDURAL PAIN
     Dosage: 1 DOSAGE FORM, PRN
     Route: 048
     Dates: start: 2018, end: 2019
  17. URSODIOL. [Concomitant]
     Active Substance: URSODIOL
     Dosage: 1 UNK
     Route: 048
     Dates: start: 20190227, end: 20190528
  18. TEDUGLUTIDE [Suspect]
     Active Substance: TEDUGLUTIDE
     Indication: SHORT-BOWEL SYNDROME
     Dosage: 0.500 MILLIGRAM/KILOGRAM, TID
     Route: 065
     Dates: start: 201709, end: 20190430
  19. URSODIOL. [Concomitant]
     Active Substance: URSODIOL
     Indication: CHOLESTASIS
     Dosage: 1 DOSAGE FORM, BID
     Route: 048
     Dates: start: 20200423, end: 20200722
  20. CYANOCOBALAMIN. [Concomitant]
     Active Substance: CYANOCOBALAMIN
     Indication: VITAMIN B12
     Dosage: 1 MILLIGRAM, MONTHLY
     Route: 030
     Dates: start: 2019

REACTIONS (2)
  - Hip fracture [Fatal]
  - Arthritis bacterial [Fatal]

NARRATIVE: CASE EVENT DATE: 20210823
